FAERS Safety Report 5386271-6 (Version None)
Quarter: 2007Q3

REPORT INFORMATION
  Report Type: 
  Country: None (occurrence: None)
  Receive Date: 20070713
  Receipt Date: 20070704
  Transmission Date: 20080115
  Serious: Yes (Other)
  Sender: FDA-Public Use
  Company Number: PHBS2007JP11479

PATIENT
  Age: 58 Year
  Sex: Female

DRUGS (3)
  1. ZOMETA [Suspect]
     Route: 042
  2. AREDIA [Suspect]
     Route: 042
  3. CAPECITABINE [Concomitant]

REACTIONS (1)
  - OSTEONECROSIS [None]
